FAERS Safety Report 23990714 (Version 2)
Quarter: 2024Q2

REPORT INFORMATION
  Report Type: Spontaneous
  Country: BR (occurrence: BR)
  Receive Date: 20240619
  Receipt Date: 20240625
  Transmission Date: 20240716
  Serious: Yes (Other)
  Sender: FDA-Public Use
  Company Number: BR-IPSEN Group, Research and Development-2024-11806

PATIENT
  Sex: Female

DRUGS (1)
  1. DYSPORT [Suspect]
     Active Substance: ABOBOTULINUMTOXINA
     Indication: Skin cosmetic procedure
     Route: 065
     Dates: start: 20240514, end: 20240514

REACTIONS (18)
  - Muscular weakness [Unknown]
  - Vomiting [Unknown]
  - Weight decreased [Unknown]
  - Discomfort [Unknown]
  - Asthenia [Unknown]
  - Dyspnoea [Unknown]
  - Loss of consciousness [Unknown]
  - Myalgia [Unknown]
  - Cough [Unknown]
  - Gastrointestinal infection [Unknown]
  - Back disorder [Unknown]
  - Feeding disorder [Unknown]
  - Injection site pain [Unknown]
  - Headache [Unknown]
  - Pain [Unknown]
  - Chills [Unknown]
  - Malaise [Unknown]
  - Product preparation issue [Unknown]

NARRATIVE: CASE EVENT DATE: 20240501
